FAERS Safety Report 15451650 (Version 7)
Quarter: 2021Q2

REPORT INFORMATION
  Report Type: Report from Study
  Country: US (occurrence: US)
  Receive Date: 20181001
  Receipt Date: 20210628
  Transmission Date: 20210716
  Serious: Yes (Other)
  Sender: FDA-Public Use
  Company Number: US-JAZZ-2018-US-013149

PATIENT
  Sex: Female

DRUGS (10)
  1. PROZAC [Concomitant]
     Active Substance: FLUOXETINE HYDROCHLORIDE
     Indication: PRODUCT USED FOR UNKNOWN INDICATION
  2. XYREM [Suspect]
     Active Substance: SODIUM OXYBATE
     Dosage: UNKNOWN LOWERED DOSE
     Route: 048
  3. XYREM [Suspect]
     Active Substance: SODIUM OXYBATE
     Dosage: 3 GRAM (FIRST DOSE)
     Route: 048
  4. XYREM [Suspect]
     Active Substance: SODIUM OXYBATE
     Dosage: 1 G, BID
     Route: 048
     Dates: start: 20180907
  5. XYREM [Suspect]
     Active Substance: SODIUM OXYBATE
     Dosage: 2 GRAM (SECOND DOSE)
     Route: 048
  6. VYVANSE [Concomitant]
     Active Substance: LISDEXAMFETAMINE DIMESYLATE
     Indication: PRODUCT USED FOR UNKNOWN INDICATION
  7. NUVIGIL [Suspect]
     Active Substance: ARMODAFINIL
     Indication: PRODUCT USED FOR UNKNOWN INDICATION
     Dosage: UNK
     Dates: end: 20180907
  8. XYREM [Suspect]
     Active Substance: SODIUM OXYBATE
     Indication: NARCOLEPSY
     Dosage: 1.5 G, BID
     Route: 048
     Dates: start: 20180824, end: 20180906
  9. CLONIDINE HCL [Concomitant]
     Active Substance: CLONIDINE HYDROCHLORIDE
     Indication: PRODUCT USED FOR UNKNOWN INDICATION
  10. REMERON [Concomitant]
     Active Substance: MIRTAZAPINE
     Indication: PRODUCT USED FOR UNKNOWN INDICATION

REACTIONS (9)
  - Eating disorder [Unknown]
  - Depression [Unknown]
  - Fatigue [Unknown]
  - Hypertension [Not Recovered/Not Resolved]
  - Disturbance in attention [Not Recovered/Not Resolved]
  - Loss of consciousness [Unknown]
  - Withdrawal syndrome [Unknown]
  - Dyspnoea [Recovered/Resolved]
  - Acne [Unknown]

NARRATIVE: CASE EVENT DATE: 2018
